FAERS Safety Report 4691836-0 (Version None)
Quarter: 2005Q2

REPORT INFORMATION
  Report Type: 
  Country: None (occurrence: None)
  Receive Date: 20050608
  Receipt Date: 20040414
  Transmission Date: 20051028
  Serious: Yes (Other)
  Sender: FDA-Public Use
  Company Number: 360758

PATIENT

DRUGS (4)
  1. ACCUTANE [Suspect]
     Indication: ACNE
     Dosage: 40 MG 2 PER DAY ORAL
     Route: 048
     Dates: start: 20040220, end: 20040304
  2. ACCUTANE [Suspect]
     Indication: ROSACEA
     Dosage: 40 MG 2 PER DAY ORAL
     Route: 048
     Dates: start: 20040220, end: 20040304
  3. OVCON-35 (ETHINYL ESTRADIOL/NORETHINDRONE) [Concomitant]
  4. DESONIDE [Concomitant]

REACTIONS (1)
  - ABORTION INDUCED [None]
